FAERS Safety Report 21554158 (Version 1)
Quarter: 2022Q4

REPORT INFORMATION
  Report Type: Other
  Country: CA (occurrence: CA)
  Receive Date: 20221104
  Receipt Date: 20221104
  Transmission Date: 20230113
  Serious: Yes (Other)
  Sender: FDA-Public Use
  Company Number: CA-002147023-NVSC2021CA154762

PATIENT
  Age: 76 Year
  Sex: Female

DRUGS (7)
  1. XOLAIR [Suspect]
     Active Substance: OMALIZUMAB
     Indication: Chronic spontaneous urticaria
     Route: 058
     Dates: start: 20201201
  2. XOLAIR [Suspect]
     Active Substance: OMALIZUMAB
     Dosage: UNK
     Route: 058
     Dates: start: 20210730
  3. HYDROXYZINE [Concomitant]
     Active Substance: HYDROXYZINE HYDROCHLORIDE
     Indication: Chronic spontaneous urticaria
     Dosage: UNK, QD
     Route: 048
  4. HYDROXYZINE [Concomitant]
     Active Substance: HYDROXYZINE HYDROCHLORIDE
     Dosage: 1 DOSAGE FORM, QD
     Route: 065
  5. HYDROXYZINE [Concomitant]
     Active Substance: HYDROXYZINE HYDROCHLORIDE
     Dosage: 1 DOSAGE FORM, BID
     Route: 065
  6. HYDROXYZINE [Concomitant]
     Active Substance: HYDROXYZINE HYDROCHLORIDE
     Dosage: UNK, QD
     Route: 048
  7. BILASTINE [Concomitant]
     Active Substance: BILASTINE
     Indication: Chronic spontaneous urticaria
     Dosage: UNK, QD
     Route: 048

REACTIONS (10)
  - Urticaria [Unknown]
  - Illness [Unknown]
  - Rash [Unknown]
  - Sleep disorder [Unknown]
  - Pruritus [Unknown]
  - Vomiting [Unknown]
  - Diarrhoea [Unknown]
  - Papule [Unknown]
  - Malaise [Unknown]
  - Drug ineffective [Unknown]

NARRATIVE: CASE EVENT DATE: 20220120
